FAERS Safety Report 9392449 (Version 5)
Quarter: 2013Q3

REPORT INFORMATION
  Report Type: Report from Study
  Country: HU (occurrence: HU)
  Receive Date: 20130710
  Receipt Date: 20130904
  Transmission Date: 20140515
  Serious: Yes (Hospitalization)
  Sender: FDA-Public Use
  Company Number: HU-ROCHE-1236150

PATIENT
  Sex: Male

DRUGS (4)
  1. XELODA [Suspect]
     Indication: GASTRIC CANCER
     Route: 048
     Dates: start: 20130603, end: 201306
  2. XELODA [Suspect]
     Route: 048
     Dates: start: 2013, end: 2013
  3. XELODA [Suspect]
     Route: 048
     Dates: start: 20130729
  4. CISPLATIN [Concomitant]
     Indication: GASTRIC CANCER

REACTIONS (10)
  - Hypotension [Unknown]
  - Pyrexia [Unknown]
  - Heat stroke [Unknown]
  - Dehydration [Recovering/Resolving]
  - Hypokalaemia [Recovering/Resolving]
  - Anaemia [Unknown]
  - Diarrhoea [Unknown]
  - Sunburn [Unknown]
  - Nausea [Recovered/Resolved]
  - Diarrhoea [Not Recovered/Not Resolved]
